FAERS Safety Report 10602849 (Version 1)
Quarter: 2014Q4

REPORT INFORMATION
  Report Type: Spontaneous
  Country: US (occurrence: US)
  Receive Date: 20141124
  Receipt Date: 20141124
  Transmission Date: 20150529
  Serious: No
  Sender: FDA-Public Use
  Company Number: US-NOVEN-14US010396

PATIENT
  Sex: Female

DRUGS (2)
  1. MINIVELLE [Suspect]
     Active Substance: ESTRADIOL
     Indication: HORMONE REPLACEMENT THERAPY
     Dosage: .075MG/DAY, 2/WK
     Route: 062
     Dates: start: 2013
  2. MINIVELLE [Suspect]
     Active Substance: ESTRADIOL
     Dosage: 0.05MG/DAY, 2/WK
     Route: 062
     Dates: start: 2013

REACTIONS (2)
  - Product quality issue [Not Recovered/Not Resolved]
  - Incorrect dose administered [Not Recovered/Not Resolved]

NARRATIVE: CASE EVENT DATE: 20140914
